FAERS Safety Report 8121232-5 (Version None)
Quarter: 2012Q1

REPORT INFORMATION
  Report Type: 
  Country: None (occurrence: None)
  Receive Date: 20120208
  Receipt Date: 20120201
  Transmission Date: 20120608
  Serious: Yes (Hospitalization)
  Sender: FDA-Public Use
  Company Number: US-BAYER-200823100NA

PATIENT
  Age: 46 Year
  Sex: Female
  Weight: 81.818 kg

DRUGS (4)
  1. LEXAPRO [Concomitant]
     Indication: PRODUCT USED FOR UNKNOWN INDICATION
     Dosage: 10/20 MG
     Route: 048
  2. YAZ [Suspect]
     Indication: MENOPAUSAL SYMPTOMS
     Dosage: 1 DF (DAILY DOSE), ,
     Dates: start: 20071101, end: 20080322
  3. BENICAR [Concomitant]
     Indication: PRODUCT USED FOR UNKNOWN INDICATION
     Dates: start: 20080321
  4. YAZ [Suspect]
     Indication: PREMENSTRUAL SYNDROME
     Dosage: UNK
     Dates: start: 20080201, end: 20080401

REACTIONS (15)
  - DEEP VEIN THROMBOSIS [None]
  - DEPRESSION [None]
  - PAIN IN EXTREMITY [None]
  - MENTAL DISORDER [None]
  - GROIN PAIN [None]
  - HEADACHE [None]
  - ANXIETY [None]
  - CHEST PAIN [None]
  - EPISTAXIS [None]
  - OEDEMA PERIPHERAL [None]
  - SKIN DISCOLOURATION [None]
  - HYPERTENSION [None]
  - CIRCULATORY COLLAPSE [None]
  - THROMBOSIS [None]
  - FEAR [None]
